FAERS Safety Report 24716994 (Version 1)
Quarter: 2024Q4

REPORT INFORMATION
  Report Type: Spontaneous
  Country: CN (occurrence: CN)
  Receive Date: 20241210
  Receipt Date: 20241210
  Transmission Date: 20250114
  Serious: Yes (Hospitalization)
  Sender: PFIZER
  Company Number: CN-PFIZER INC-PV202400158869

PATIENT
  Age: 71 Year
  Sex: Female

DRUGS (2)
  1. LORLATINIB [Suspect]
     Active Substance: LORLATINIB
     Indication: Symptomatic treatment
     Dosage: 100 MG, 1X/DAY
     Route: 048
     Dates: start: 20241121, end: 20241121
  2. LORLATINIB [Suspect]
     Active Substance: LORLATINIB
     Indication: Lung adenocarcinoma
     Dosage: UNK
     Route: 048
     Dates: start: 20241130, end: 2024

REACTIONS (6)
  - Mental disorder [Recovering/Resolving]
  - Loss of consciousness [Recovering/Resolving]
  - Disorganised speech [Recovering/Resolving]
  - Dizziness [Recovering/Resolving]
  - Dysphoria [Recovering/Resolving]
  - Psychomotor hyperactivity [Recovering/Resolving]

NARRATIVE: CASE EVENT DATE: 20241121
